FAERS Safety Report 8862759 (Version 1)
Quarter: 2012Q4

REPORT INFORMATION
  Report Type: 
  Country: US (occurrence: US)
  Receive Date: 20121026
  Receipt Date: 20121026
  Transmission Date: 20130627
  Serious: No
  Sender: FDA-Public Use
  Company Number: US-ALLERGAN-1209021US

PATIENT
  Age: 84 Year
  Sex: Female

DRUGS (5)
  1. ALPHAGAN P [Suspect]
     Indication: GLAUCOMA
     Dosage: 1 Gtt, bid
     Route: 047
     Dates: start: 201203
  2. TIMOLOL MALEATE [Concomitant]
     Indication: GLAUCOMA
     Dosage: 1 Gtt, bid
     Route: 047
  3. METFORMIN [Concomitant]
     Indication: DIABETES
     Dosage: UNK
     Route: 048
  4. METOPROLOL [Concomitant]
     Indication: HYPERTENSION
     Dosage: UNK
     Route: 048
  5. CHOLESTEROL LOWERING AGENT [Concomitant]
     Indication: HYPERCHOLESTEROLEMIA
     Dosage: UNK
     Route: 048

REACTIONS (3)
  - Abnormal sensation in eye [Not Recovered/Not Resolved]
  - Nausea [Not Recovered/Not Resolved]
  - Dizziness [Not Recovered/Not Resolved]
